FAERS Safety Report 18995283 (Version 2)
Quarter: 2021Q1

REPORT INFORMATION
  Report Type: Spontaneous
  Country: DE (occurrence: DE)
  Receive Date: 20210311
  Receipt Date: 20210331
  Transmission Date: 20210420
  Serious: Yes (Hospitalization, Other)
  Sender: FDA-Public Use
  Company Number: DE-EXELIXIS-CABO-21038305

PATIENT
  Age: 75 Year
  Sex: Male

DRUGS (1)
  1. CABOMETYX [Suspect]
     Active Substance: CABOZANTINIB S-MALATE
     Indication: RENAL CELL CARCINOMA
     Dosage: 40 MG, QD
     Route: 048
     Dates: start: 20210216, end: 20210301

REACTIONS (14)
  - Gastritis bacterial [Unknown]
  - Constipation [Not Recovered/Not Resolved]
  - Oedema peripheral [Unknown]
  - Asthenia [Unknown]
  - Pulmonary embolism [Unknown]
  - Gait disturbance [Unknown]
  - Circulatory collapse [Not Recovered/Not Resolved]
  - Pain in extremity [Not Recovered/Not Resolved]
  - Dysphagia [Not Recovered/Not Resolved]
  - Dysphonia [Recovering/Resolving]
  - Gastric ulcer [Unknown]
  - Fatigue [Not Recovered/Not Resolved]
  - Decreased appetite [Not Recovered/Not Resolved]
  - Thrombosis [Unknown]

NARRATIVE: CASE EVENT DATE: 20210228
